FAERS Safety Report 23866994 (Version 1)
Quarter: 2024Q2

REPORT INFORMATION
  Report Type: Spontaneous
  Country: NL (occurrence: NL)
  Receive Date: 20240517
  Receipt Date: 20240517
  Transmission Date: 20240715
  Serious: Yes (Death, Other)
  Sender: FDA-Public Use
  Company Number: NL-LRB-00968528

PATIENT
  Age: 79 Year
  Sex: Male
  Weight: 78 kg

DRUGS (4)
  1. OMEPRAZOLE [Suspect]
     Active Substance: DONEPEZIL HYDROCHLORIDE\OMEPRAZOLE\OMEPRAZOLE MAGNESIUM
     Indication: Dyspepsia
     Dosage: 1 DOSAGE FORM, ONCE A DAY
     Route: 065
     Dates: start: 20100824, end: 20240307
  2. BUMETANIDE [Suspect]
     Active Substance: BUMETANIDE
     Indication: Hypervolaemia
     Dosage: 1 DOSAGE FORM, ONCE A DAY
     Route: 065
     Dates: start: 20230301, end: 20240307
  3. CALCIUMGLUCONAAT [Concomitant]
     Indication: Product used for unknown indication
     Dosage: UNK
     Route: 065
  4. MAGNESIUMSULFAAT [Concomitant]
     Indication: Product used for unknown indication
     Dosage: UNK
     Route: 065

REACTIONS (2)
  - Seizure [Fatal]
  - Hypomagnesaemia [Fatal]
